FAERS Safety Report 5034424-9 (Version None)
Quarter: 2006Q2

REPORT INFORMATION
  Report Type: 
  Country: None (occurrence: None)
  Receive Date: 20060626
  Receipt Date: 20060612
  Transmission Date: 20061013
  Serious: Yes (Hospitalization)
  Sender: FDA-Public Use
  Company Number: US-JNJFOC-20060403587

PATIENT
  Sex: Male
  Weight: 108.41 kg

DRUGS (45)
  1. DURAGESIC-100 [Suspect]
     Route: 062
  2. DURAGESIC-100 [Suspect]
     Indication: CANCER PAIN
     Route: 062
  3. LASIX [Concomitant]
     Dosage: 40 MG AM AND 30 MG PM
  4. PROMETHAZINE W/ CODEINE [Concomitant]
     Dosage: 1 TSP EVERY 8 HOURS
     Route: 048
  5. TYLENOL (CAPLET) [Concomitant]
     Dosage: AS NECESSARY
  6. COUMADIN [Concomitant]
  7. KYTRIL [Concomitant]
     Route: 048
  8. COMPAZINE [Concomitant]
     Dosage: 1 TABLET EVERY 4 TO 6 HOURS AS NEEDED
     Route: 048
  9. NEXIUM [Concomitant]
     Route: 048
  10. ADVAIR DISKUS 100/50 [Concomitant]
     Dosage: AS NECESSARY
     Route: 055
  11. COMBIVENT [Concomitant]
     Dosage: AS NECESSARY
     Route: 055
  12. PROSCAR [Concomitant]
     Route: 048
  13. XANAX XR [Concomitant]
     Route: 048
  14. AMARYL [Concomitant]
     Route: 048
  15. PREVACID [Concomitant]
  16. CYMBALTA [Concomitant]
  17. PERCOCET [Concomitant]
     Dosage: EVERY 4 TO 6 HOURS, ORAL
     Route: 048
  18. POTASSIUM [Concomitant]
     Route: 048
  19. COREG [Concomitant]
  20. IMDUR [Concomitant]
     Route: 048
  21. BENADRYL [Concomitant]
     Dosage: AS NECESSARY
  22. SINGULAIR [Concomitant]
     Route: 048
  23. ZOCOR [Concomitant]
     Route: 048
  24. CEPHALEXIN [Concomitant]
     Route: 048
  25. TESSALON [Concomitant]
     Route: 048
  26. TESSALON [Concomitant]
     Dosage: 1 TO 2 TABLETS THREE TIMES A DAY
     Route: 048
  27. NYSTATIN [Concomitant]
  28. CLINDAMYCIN [Concomitant]
  29. ANUCORT [Concomitant]
     Dosage: BEDTIME DOSE
  30. NITROGLYCERIN [Concomitant]
  31. GUAIFENESIN WITH HYDROCODONE [Concomitant]
     Route: 048
  32. GUAIFENESIN WITH HYDROCODONE [Concomitant]
     Dosage: 1 TEASPOON TWICE DAILY
     Route: 048
  33. FOLIC ACID [Concomitant]
  34. DEXAMETHASONE TAB [Concomitant]
     Dosage: WAS GIVEN BEFORE CHEMOTHERAPY
  35. HUMALOG [Concomitant]
     Dosage: SLIDING SCALE
  36. LANTUS [Concomitant]
     Dosage: 20 UNITS AM
  37. PREDNISONE [Concomitant]
     Dosage: TOOK AS DIRECTED
  38. ALIMTA [Concomitant]
  39. CIPRO [Concomitant]
  40. ALTACE [Concomitant]
  41. PROTONIX [Concomitant]
  42. AVELOX [Concomitant]
     Route: 048
  43. DILAUDID [Concomitant]
  44. ROZEREM [Concomitant]
     Dosage: ONE AT NIGHT
     Route: 048
  45. DIOVAN [Concomitant]
     Route: 048

REACTIONS (5)
  - DEPRESSED LEVEL OF CONSCIOUSNESS [None]
  - HEPATIC FUNCTION ABNORMAL [None]
  - MYOCARDIAL INFARCTION [None]
  - RENAL IMPAIRMENT [None]
  - RESPIRATORY RATE DECREASED [None]
